FAERS Safety Report 13294458 (Version 1)
Quarter: 2020Q3

REPORT INFORMATION
  Report Type: Report from Study
  Country: DE (occurrence: DE)
  Receive Date: 20170303
  Receipt Date: 20170303
  Transmission Date: 20201104
  Serious: Yes (Hospitalization, Other)
  Sender: FDA-Public Use
  Company Number: DE-JNJFOC-20170302055

PATIENT
  Age: 53 Year
  Sex: Male
  Weight: 83 kg

DRUGS (4)
  1. TMC278 LA [Suspect]
     Active Substance: RILPIVIRINE
     Indication: HIV INFECTION
     Route: 030
     Dates: start: 20141118, end: 20141118
  2. CABOTEGRAVIR [Suspect]
     Active Substance: CABOTEGRAVIR
     Indication: HIV INFECTION
     Route: 030
     Dates: start: 20141118
  3. RILPIVIRINE [Suspect]
     Active Substance: RILPIVIRINE
     Indication: HIV INFECTION
     Route: 048
     Dates: start: 20141020, end: 20141118
  4. CABOTEGRAVIR [Suspect]
     Active Substance: CABOTEGRAVIR
     Indication: HIV INFECTION
     Route: 048
     Dates: start: 20140630, end: 20141118

REACTIONS (1)
  - Endocarditis [Not Recovered/Not Resolved]

NARRATIVE: CASE EVENT DATE: 20170217
